FAERS Safety Report 5371119-6 (Version None)
Quarter: 2007Q2

REPORT INFORMATION
  Report Type: 
  Country: None (occurrence: None)
  Receive Date: 20070615
  Receipt Date: 20070327
  Transmission Date: 20071010
  Serious: Yes (Other)
  Sender: FDA-Public Use
  Company Number: 200712205US

PATIENT
  Age: 89 Year
  Sex: Female

DRUGS (19)
  1. LANTUS [Suspect]
     Dosage: 14 U INJ
     Dates: start: 20070227
  2. INSULIN HUMAN REGULAR [Concomitant]
  3. LASIX [Concomitant]
  4. PIOGLITAZONE [Concomitant]
  5. GLUCOTROL [Concomitant]
  6. IMDUR [Concomitant]
  7. METOPROLOL SUCCINATE [Concomitant]
  8. QUINAPRIL HYROCHLORIDE (ACCCUPRIL) [Concomitant]
  9. VITAMINS NOS (MVI) [Concomitant]
  10. CALCITONIN, SALMON (MIACALCIN) [Concomitant]
  11. FLUTICASONE PROPIONATE, SALMETEROL XINAFOATE (ADVAIR) [Concomitant]
  12. GUAIFENESIN (MUCINEX) [Concomitant]
  13. PAREGORIC [Concomitant]
  14. BETAMETHASONE DIPROPIONATE [Concomitant]
  15. CLOTRIMAZOLE (LOTRISONE) [Concomitant]
  16. IPRATROPIUM BROMIDE [Concomitant]
  17. SALBUTAMOL SULFATE (DUONEB) [Concomitant]
  18. VENTOLIN [Concomitant]
  19. PREDNISONE [Concomitant]

REACTIONS (1)
  - HYPERGLYCAEMIA [None]
